FAERS Safety Report 5977307-X (Version None)
Quarter: 2008Q4

REPORT INFORMATION
  Report Type: 
  Country: None (occurrence: None)
  Receive Date: 20081203
  Receipt Date: 20081119
  Transmission Date: 20090506
  Serious: Yes (Other)
  Sender: FDA-Public Use
  Company Number: PHHY2008JP22555

PATIENT
  Sex: Male

DRUGS (6)
  1. NEORAL [Suspect]
     Indication: GLOMERULONEPHRITIS CHRONIC
     Dosage: 14 ML/DAY
     Route: 048
     Dates: start: 20080808
  2. NEORAL [Suspect]
     Dosage: 0.8 ML/DAY
     Route: 048
     Dates: start: 20080820, end: 20080827
  3. NEORAL [Suspect]
     Dosage: 70 MG/DAY
     Route: 048
     Dates: start: 20080827
  4. NORVASC [Concomitant]
     Dosage: 5 MG
     Route: 048
  5. FERROMIA [Concomitant]
     Dosage: 200 MG
     Route: 048
  6. EPOGIN [Concomitant]
     Dosage: 3000 IU
     Route: 058

REACTIONS (2)
  - BLOOD POTASSIUM DECREASED [None]
  - METABOLIC ALKALOSIS [None]
